FAERS Safety Report 5477479-X (Version None)
Quarter: 2007Q4

REPORT INFORMATION
  Report Type: 
  Country: None (occurrence: None)
  Receive Date: 20071001
  Receipt Date: 20070924
  Transmission Date: 20080405
  Serious: Yes (Hospitalization, Other)
  Sender: FDA-Public Use
  Company Number: 2007SP018353

PATIENT
  Age: 31 Year
  Sex: Female
  Weight: 59 kg

DRUGS (5)
  1. VIRAFERONPEG [Suspect]
     Indication: HEPATITIS C
     Dosage: 80 MCG; QW; SC
     Route: 058
     Dates: start: 20070119
  2. REBETOL [Suspect]
     Indication: HEPATITIS C
     Dosage: 800 MG; QD; PO, 600 MG; QD; PO
     Route: 048
     Dates: start: 20070119
  3. ABILIFY [Suspect]
     Indication: MANIA
     Dosage: 5 MG; QD; PO
     Route: 048
     Dates: start: 20070607, end: 20070909
  4. ZOLOFT [Concomitant]
  5. PARACETAMOL [Concomitant]

REACTIONS (5)
  - ABDOMINAL PAIN [None]
  - ANAEMIA [None]
  - DEPRESSION [None]
  - DIABETIC KETOACIDOSIS [None]
  - MANIA [None]
